FAERS Safety Report 7021909-9 (Version None)
Quarter: 2010Q3

REPORT INFORMATION
  Report Type: 
  Country: None (occurrence: None)
  Receive Date: 20100930
  Receipt Date: 20100920
  Transmission Date: 20110219
  Serious: Yes (Hospitalization)
  Sender: FDA-Public Use
  Company Number: US-US-EMD SERONO, INC.-7013719

PATIENT
  Sex: Female
  Weight: 2 kg

DRUGS (5)
  1. REBIF [Suspect]
     Route: 064
  2. SYNTHROID [Concomitant]
     Route: 064
     Dates: start: 20020101
  3. PROZAC [Concomitant]
     Route: 064
  4. BACLOFEN [Concomitant]
     Route: 064
  5. TIZANIDINE HCL [Concomitant]
     Route: 064

REACTIONS (1)
  - PREMATURE BABY [None]
